FAERS Safety Report 7990321-8 (Version None)
Quarter: 2011Q4

REPORT INFORMATION
  Report Type: 
  Country: None (occurrence: None)
  Receive Date: 20111219
  Receipt Date: 20110602
  Transmission Date: 20120403
  Serious: No
  Sender: FDA-Public Use
  Company Number: US-ASTRAZENECA-2011SE33925

PATIENT
  Age: 62 Year
  Sex: Female

DRUGS (11)
  1. NIAICIN [Concomitant]
  2. FISH OIL OTC [Concomitant]
  3. SYNTHROID [Concomitant]
  4. SERTRALINE HYDROCHLORIDE [Concomitant]
  5. ALLOPURINOL [Concomitant]
  6. GEMFIBROZIL [Concomitant]
  7. LISINOPRIL [Concomitant]
  8. CRESTOR [Suspect]
     Route: 048
  9. CARVEDILOL [Concomitant]
  10. HYDROCODONE [Concomitant]
  11. THIRSAPRIDE [Concomitant]

REACTIONS (2)
  - DRUG INEFFECTIVE [None]
  - LOW DENSITY LIPOPROTEIN INCREASED [None]
